FAERS Safety Report 19850473 (Version 2)
Quarter: 2021Q4

REPORT INFORMATION
  Report Type: Spontaneous
  Country: SE (occurrence: SE)
  Receive Date: 20210918
  Receipt Date: 20211004
  Transmission Date: 20220304
  Serious: Yes (Death, Hospitalization)
  Sender: FDA-Public Use
  Company Number: None

PATIENT
  Age: 37 Year
  Sex: Female

DRUGS (32)
  1. PIOGLITAZONE [Suspect]
     Active Substance: PIOGLITAZONE
     Indication: Type 2 diabetes mellitus
     Dates: start: 20210604, end: 202108
  2. VICTOZA [Concomitant]
     Active Substance: LIRAGLUTIDE
     Dosage: STRENGTH 6 MG / ML,ACCORDING TO THE PRESCRIPTION, SIC
     Route: 058
     Dates: start: 20210715
  3. SODIUM PICOSULFATE [Concomitant]
     Active Substance: SODIUM PICOSULFATE
     Dosage: STRENGTH 7.5 MG / ML, 10 DROPS IF NEEDED
     Dates: start: 20210608
  4. ZOLPIDEM [Concomitant]
     Active Substance: ZOLPIDEM TARTRATE
     Dosage: 10 MG
     Dates: start: 20210729
  5. Oxycodone depot 1A Farma [Concomitant]
     Dosage: STRENGTH 10 MG
     Dates: start: 20201108
  6. FRAGMIN [Concomitant]
     Active Substance: DALTEPARIN SODIUM
  7. CLEMASTINE FUMARATE [Concomitant]
     Active Substance: CLEMASTINE FUMARATE
     Dates: start: 20210311
  8. DOXAZOSIN [Concomitant]
     Active Substance: DOXAZOSIN MESYLATE
     Dosage: STRENGTH 4 MG
     Dates: start: 20210422
  9. QUETIAPINE [Concomitant]
     Active Substance: QUETIAPINE
     Dates: start: 20210729
  10. PRIMPERAN [Concomitant]
     Active Substance: METOCLOPRAMIDE HYDROCHLORIDE
     Dosage: STRENGTH 10 MG
     Dates: start: 20210726
  11. AMLODIPINE [Concomitant]
     Active Substance: AMLODIPINE BESYLATE
     Dates: start: 20210812
  12. Alfacalcidol Orifarm [Concomitant]
     Dosage: STRENGTH  0.25 MICROGRAM
     Dates: start: 20201127
  13. Toujeo Double Star [Concomitant]
     Dosage: STRENGTH 300 UNITS / ML
     Dates: start: 20210802
  14. Ondansetron Bluefish [Concomitant]
     Dosage: ACCORDING TO PRESCRIPTION
     Dates: start: 20201206
  15. MOVICOL [Concomitant]
     Active Substance: POLYETHYLENE GLYCOL 3350\POTASSIUM CHLORIDE\SODIUM BICARBONATE\SODIUM CHLORIDE
     Dates: start: 20210802
  16. Loratadine Orifarm [Concomitant]
     Dosage: 1-2 TABLETS DAILY IF NEEDED
     Dates: start: 20210414
  17. OXAZEPAM [Concomitant]
     Active Substance: OXAZEPAM
     Dates: start: 20201217
  18. Lacrimont [Concomitant]
     Dosage: STRENGTH 2 MG / G
     Dates: start: 20210318
  19. ERYTHROPOIETIN [Concomitant]
     Active Substance: ERYTHROPOIETIN
     Dosage: STRENGTH 0.5 ML
     Dates: start: 20210419
  20. Furix [Concomitant]
     Dosage: STRENGTH 500 MG, 0.5 TABLET AT 08 AND 0.25 TABLET AT 14
     Dates: start: 20210802
  21. CALCIUM CARBONATE [Concomitant]
     Active Substance: CALCIUM CARBONATE
     Dosage: STRENGTH 500 MG
     Dates: start: 20210617
  22. PROPIOMAZINE [Concomitant]
     Active Substance: PROPIOMAZINE
     Dosage: STRENGTH 25 MG
     Dates: start: 20201103
  23. FOSRENOL [Concomitant]
     Active Substance: LANTHANUM CARBONATE
     Dosage: STRENGTH 500 MG, 7 TABLETS DAILY ARE DISTRIBUTED 1-2 PER MEAL.
     Dates: start: 20210420
  24. ACETAMINOPHEN [Concomitant]
     Active Substance: ACETAMINOPHEN
     Dosage: STRENGTH 500 MG
     Dates: start: 20210726
  25. HALDOL [Concomitant]
     Active Substance: HALOPERIDOL
     Dosage: STRENGTH 1 MG
     Dates: start: 20210729
  26. LANSOPRAZOLE [Concomitant]
     Active Substance: LANSOPRAZOLE
     Dosage: STRENGTH 30 MG
     Dates: start: 20210512
  27. Carvedilol Ebb [Concomitant]
     Dosage: STRENGTH 25 MG
     Dates: start: 20210512
  28. CHOLECALCIFEROL [Concomitant]
     Active Substance: CHOLECALCIFEROL
     Dates: start: 20210527
  29. DIAZEPAM [Concomitant]
     Active Substance: DIAZEPAM
     Dosage: STRENGTH 5 MG
     Dates: start: 20201119
  30. SUMATRIPTAN [Concomitant]
     Active Substance: SUMATRIPTAN
     Dosage: STRENGTH 50 MG, MAX 2 PER DAY
     Dates: start: 20210318
  31. DULOXETINE HYDROCHLORIDE [Concomitant]
     Active Substance: DULOXETINE HYDROCHLORIDE
     Dosage: STRENGTH 60 MG, ENTERIC CAPSULE, HARD CAPSULE
     Dates: start: 20210727
  32. SODIUM BICARBONATE [Concomitant]
     Active Substance: SODIUM BICARBONATE
     Dosage: WITH 1 G TABLET
     Dates: start: 20201104

REACTIONS (2)
  - Pericardial effusion [Fatal]
  - Pleural effusion [Fatal]

NARRATIVE: CASE EVENT DATE: 20210801
